FAERS Safety Report 9256049 (Version 1)
Quarter: 2013Q2

REPORT INFORMATION
  Report Type: Spontaneous
  Country: US (occurrence: US)
  Receive Date: 20130425
  Receipt Date: 20130425
  Transmission Date: 20140414
  Serious: Yes (Hospitalization)
  Sender: FDA-Public Use
  Company Number: US-AMGEN-USASP2012011155

PATIENT
  Sex: Female

DRUGS (27)
  1. PEGFILGRASTIM [Suspect]
     Indication: NON-HODGKIN^S LYMPHOMA
     Dosage: 6 MG, UNK
     Route: 058
     Dates: start: 20120114
  2. RITUXIMAB [Suspect]
     Indication: NON-HODGKIN^S LYMPHOMA
     Dosage: 919 MG, UNK
     Route: 042
     Dates: start: 20120113
  3. METHOTREXATE [Suspect]
     Indication: NON-HODGKIN^S LYMPHOMA
     Dosage: 490 MG, UNK
     Route: 042
     Dates: start: 20120113
  4. METHOTREXATE [Suspect]
     Dosage: 1960 MG, UNK
     Route: 042
     Dates: start: 20120113
  5. CYTARABINE [Suspect]
     Indication: NON-HODGKIN^S LYMPHOMA
     Dosage: 7.35 MG, Q12H
     Route: 042
     Dates: start: 20120113
  6. LEUCOVORIN /00566701/ [Suspect]
     Indication: NON-HODGKIN^S LYMPHOMA
     Dosage: 50 MG, UNK
     Route: 048
     Dates: start: 20120113
  7. LEUCOVORIN /00566701/ [Suspect]
     Dosage: 15 MG, Q6H
     Route: 048
     Dates: start: 20120113
  8. BACLOFEN [Concomitant]
  9. CREON [Concomitant]
  10. PEPCID                             /00706001/ [Concomitant]
  11. FENTANYL CITRATE [Concomitant]
  12. DIFLUCAN [Concomitant]
  13. FOLIC ACID [Concomitant]
  14. NEURONTIN [Concomitant]
  15. DILAUDID [Concomitant]
  16. INSULIN GLARGINE [Concomitant]
  17. INSULIN [Concomitant]
  18. LEVOTHYROXINE SODIUM [Concomitant]
  19. LINEZOLID [Concomitant]
  20. ATIVAN [Concomitant]
  21. ZOFRAN                             /00955302/ [Concomitant]
  22. PHENERGAN                          /00033002/ [Concomitant]
  23. CRESTOR [Concomitant]
  24. SENNA                              /00142201/ [Concomitant]
  25. VALTREX [Concomitant]
  26. VITAMIN B12                        /00056201/ [Concomitant]
  27. VITAMIN D NOS [Concomitant]

REACTIONS (2)
  - Pyrexia [Unknown]
  - Diarrhoea [Recovered/Resolved]
